FAERS Safety Report 22285497 (Version 1)
Quarter: 2023Q2

REPORT INFORMATION
  Report Type: Spontaneous
  Country: US (occurrence: US)
  Receive Date: 20230504
  Receipt Date: 20230504
  Transmission Date: 20230721
  Serious: No
  Sender: FDA-Public Use
  Company Number: US-INCYTE CORPORATION-2023IN004290

PATIENT

DRUGS (2)
  1. JAKAFI [Suspect]
     Active Substance: RUXOLITINIB
     Indication: Essential thrombocythaemia
     Dosage: 5 MILLIGRAM, BID
     Route: 048
     Dates: start: 20230126, end: 202303
  2. VONJO [Suspect]
     Active Substance: PACRITINIB
     Dosage: UNK
     Route: 065
     Dates: start: 202303

REACTIONS (5)
  - Diarrhoea [Unknown]
  - Sneezing [Unknown]
  - Sinus disorder [Unknown]
  - Haemoglobin decreased [Recovering/Resolving]
  - Off label use [Unknown]

NARRATIVE: CASE EVENT DATE: 20230126
